FAERS Safety Report 23150764 (Version 1)
Quarter: 2023Q4

REPORT INFORMATION
  Report Type: Spontaneous
  Country: IN (occurrence: IN)
  Receive Date: 20231106
  Receipt Date: 20231106
  Transmission Date: 20240109
  Serious: Yes (Death)
  Sender: FDA-Public Use
  Company Number: IN-PFIZER INC-PV202200112282

PATIENT
  Age: 66 Year
  Sex: Female

DRUGS (2)
  1. PALBOCICLIB [Suspect]
     Active Substance: PALBOCICLIB
     Dosage: 125 MG, CYCLIC (ONCE DAILY 1-0-0 FOR 3 WEEKS ,ONE WEEK OFF)
     Route: 048
  2. ANASTROZOLE [Concomitant]
     Active Substance: ANASTROZOLE
     Dosage: UNK UNK, 1X/DAY

REACTIONS (4)
  - Second primary malignancy [Fatal]
  - Haematopoietic neoplasm [Fatal]
  - Blood creatinine increased [Unknown]
  - Neoplasm progression [Unknown]
